FAERS Safety Report 6231063-9 (Version None)
Quarter: 2009Q2

REPORT INFORMATION
  Report Type: 
  Country: None (occurrence: None)
  Receive Date: 20090616
  Receipt Date: 20090608
  Transmission Date: 20091009
  Serious: Yes (Hospitalization, Other)
  Sender: FDA-Public Use
  Company Number: US-JNJFOC-20090505007

PATIENT
  Sex: Female
  Weight: 103.87 kg

DRUGS (5)
  1. REMICADE [Suspect]
     Indication: RHEUMATOID ARTHRITIS
     Route: 042
  2. METHOTREXATE [Concomitant]
     Indication: RHEUMATOID ARTHRITIS
  3. LASIX [Concomitant]
     Indication: HYPERTENSION
  4. HORMONE REPLACEMENT [Concomitant]
     Indication: HORMONE REPLACEMENT THERAPY
     Route: 061
  5. VITAMIN [Concomitant]
     Indication: ROUTINE HEALTH MAINTENANCE

REACTIONS (2)
  - ANORECTAL OPERATION [None]
  - URINARY TRACT INFECTION [None]
